FAERS Safety Report 8997886 (Version 2)
Quarter: 2013Q1

REPORT INFORMATION
  Report Type: Report from Study
  Country: FR (occurrence: FR)
  Receive Date: 20130104
  Receipt Date: 20130111
  Transmission Date: 20140127
  Serious: Yes (Death)
  Sender: FDA-Public Use
  Company Number: PHHY2013FR001112

PATIENT
  Age: 70 Year
  Sex: Male
  Weight: 96 kg

DRUGS (2)
  1. RASILEZ [Suspect]
     Indication: NEPHROPATHY
     Dosage: 300 MG, DAILY
     Route: 048
     Dates: start: 20101109
  2. COAPROVEL [Concomitant]
     Dosage: 1 DF, DAILY(IRBE 150 MG, HYDR 12.5 MG)
     Dates: start: 20100126

REACTIONS (1)
  - Myocardial infarction [Fatal]
